FAERS Safety Report 4520175-3 (Version None)
Quarter: 2004Q4

REPORT INFORMATION
  Report Type: 
  Country: None (occurrence: None)
  Receive Date: 20041027
  Receipt Date: 20040825
  Transmission Date: 20050328
  Serious: No
  Sender: FDA-Public Use
  Company Number: US088539

PATIENT
  Age: 51 Year
  Sex: Male
  Weight: 65.9 kg

DRUGS (8)
  1. SENSIPAR [Suspect]
     Indication: HYPERPARATHYROIDISM SECONDARY
     Dosage: 30 MG, 1 IN 1 DAYS, PO
     Route: 048
     Dates: start: 20040715, end: 20040722
  2. MUPIROCIN [Concomitant]
  3. VALSARTAN [Concomitant]
  4. DOXERCALCEROL [Concomitant]
  5. ATORVASTATIN CALCIUM [Concomitant]
  6. NEPHRO-VITE [Concomitant]
  7. SEVELAMER HCL [Concomitant]
  8. EPOGEN [Concomitant]

REACTIONS (4)
  - ABDOMINAL PAIN UPPER [None]
  - DECREASED APPETITE [None]
  - HEADACHE [None]
  - SENSATION OF HEAVINESS [None]
